FAERS Safety Report 4597828-4 (Version None)
Quarter: 2005Q1

REPORT INFORMATION
  Report Type: 
  Country: None (occurrence: None)
  Receive Date: 20050303
  Receipt Date: 20041130
  Transmission Date: 20050727
  Serious: Yes (Life-Threatening, Hospitalization)
  Sender: FDA-Public Use
  Company Number: DE-MERCK-0502DEU00162

PATIENT
  Age: 65 Year
  Sex: Male
  Weight: 69 kg

DRUGS (9)
  1. PRIMAXIN [Suspect]
     Indication: FEBRILE NEUTROPENIA
     Route: 042
     Dates: start: 20040420, end: 20040429
  2. PRIMAXIN [Suspect]
     Route: 042
     Dates: start: 20040430, end: 20040506
  3. PRIMAXIN [Suspect]
     Indication: INFECTION
     Route: 042
     Dates: start: 20040420, end: 20040429
  4. PRIMAXIN [Suspect]
     Route: 042
     Dates: start: 20040430, end: 20040506
  5. ITRACONAZOLE [Concomitant]
     Indication: PNEUMONIA ASPERGILLUS
     Route: 048
     Dates: start: 20040501, end: 20040508
  6. ITRACONAZOLE [Concomitant]
     Route: 065
     Dates: start: 20040501, end: 20040508
  7. PANTOPRAZOLE SODIUM [Concomitant]
     Route: 065
  8. BISOPROLOL FUMARATE [Concomitant]
     Indication: HYPERTENSION
     Route: 048
     Dates: end: 20040506
  9. TRANEXAMIC ACID [Concomitant]
     Indication: COAGULOPATHY
     Route: 065
     Dates: start: 20040505, end: 20040508

REACTIONS (2)
  - MENTAL DISORDER DUE TO A GENERAL MEDICAL CONDITION [None]
  - SYNCOPE [None]
